FAERS Safety Report 17291399 (Version 3)
Quarter: 2020Q1

REPORT INFORMATION
  Report Type: Report from Study
  Country: GB (occurrence: GB)
  Receive Date: 20200121
  Receipt Date: 20200212
  Transmission Date: 20200409
  Serious: Yes (Hospitalization)
  Sender: FDA-Public Use
  Company Number: GB-ROCHE-2520537

PATIENT
  Age: 76 Year
  Sex: Female
  Weight: 56 kg

DRUGS (5)
  1. RITUXIMAB. [Suspect]
     Active Substance: RITUXIMAB
     Indication: DIFFUSE LARGE B-CELL LYMPHOMA REFRACTORY
     Dosage: DATE OF MOST RECENT DOSE OF RITUXIMAB ADMINISTERED PRIOR TO SAE ONSET: 07/JAN/2020
     Route: 050
     Dates: start: 20191126
  2. GEMCITABINE. [Suspect]
     Active Substance: GEMCITABINE
     Indication: DIFFUSE LARGE B-CELL LYMPHOMA REFRACTORY
     Dosage: DATE OF MOST RECENT DOSE OF GEMCITABINE ADMINISTERED PRIOR TO SAE ONSET: 07/JAN/2020
     Route: 065
     Dates: start: 20191126
  3. G-CSF [Suspect]
     Active Substance: GRANULOCYTE COLONY-STIMULATING FACTOR NOS
     Indication: DIFFUSE LARGE B-CELL LYMPHOMA REFRACTORY
     Dosage: DATE OF MOST RECENT DOSE OF G-CSF ADMINISTERED PRIOR TO SAE ONSET: 03/JAN/2020
     Route: 065
     Dates: start: 20191130
  4. OXALIPLATIN. [Suspect]
     Active Substance: OXALIPLATIN
     Indication: DIFFUSE LARGE B-CELL LYMPHOMA REFRACTORY
     Dosage: DATE OF MOST RECENT DOSE OF OXALIPLATIN ADMINISTERED PRIOR TO SAE ONSET: 07/JAN/2020
     Route: 065
     Dates: start: 20191126
  5. ATEZOLIZUMAB. [Suspect]
     Active Substance: ATEZOLIZUMAB
     Indication: DIFFUSE LARGE B-CELL LYMPHOMA REFRACTORY
     Dosage: DATE OF MOST RECENT DOSE OF ATEZOLIZUMAB ADMINISTERED PRIOR TO SAE ONSET: 07/JAN/2020
     Route: 065
     Dates: start: 20191210

REACTIONS (4)
  - Tachycardia [Not Recovered/Not Resolved]
  - Influenza [Recovered/Resolved]
  - Wheezing [Not Recovered/Not Resolved]
  - Nausea [Not Recovered/Not Resolved]

NARRATIVE: CASE EVENT DATE: 20200107
